FAERS Safety Report 7733130-7 (Version None)
Quarter: 2011Q3

REPORT INFORMATION
  Report Type: 
  Country: None (occurrence: None)
  Receive Date: 20110907
  Receipt Date: 20110905
  Transmission Date: 20111222
  Serious: Yes (Other)
  Sender: FDA-Public Use
  Company Number: PHHY2011NL60309

PATIENT
  Sex: Female

DRUGS (5)
  1. TEGRETOL [Concomitant]
     Dosage: 2 DF, 200 MG
  2. ZOLEDRONOC ACID [Suspect]
     Dosage: 5 MG, UNK
     Route: 042
     Dates: start: 20100714
  3. TRAMADOL HYDROCHLORIDE [Concomitant]
     Dosage: 1 DF, 50 MG
  4. ZOLEDRONOC ACID [Suspect]
     Indication: OSTEOPOROSIS
     Dosage: 5 MG, UNK
     Route: 042
     Dates: start: 20090710
  5. COZAAR [Concomitant]
     Dosage: 2 DF, 50 MG

REACTIONS (2)
  - HYPERPLASIA [None]
  - PAIN IN JAW [None]
